FAERS Safety Report 7396486-3 (Version None)
Quarter: 2011Q2

REPORT INFORMATION
  Report Type: 
  Country: None (occurrence: None)
  Receive Date: 20110406
  Receipt Date: 20101029
  Transmission Date: 20111010
  Serious: Yes (Hospitalization, Other)
  Sender: FDA-Public Use
  Company Number: US-BAYER-201029796NA

PATIENT
  Sex: Female
  Weight: 56.689 kg

DRUGS (2)
  1. ADVIL LIQUI-GELS [Concomitant]
  2. YASMIN [Suspect]
     Dosage: UNK UNK, UNK
     Route: 048
     Dates: start: 20060301, end: 20061001

REACTIONS (1)
  - DEEP VEIN THROMBOSIS [None]
